FAERS Safety Report 4430808-8 (Version None)
Quarter: 2004Q3

REPORT INFORMATION
  Report Type: 
  Country: None (occurrence: None)
  Receive Date: 20040823
  Receipt Date: 20040813
  Transmission Date: 20050211
  Serious: Yes (Other)
  Sender: FDA-Public Use
  Company Number: PL-BRISTOL-MYERS SQUIBB COMPANY-12671392

PATIENT
  Age: 51 Year
  Sex: Male

DRUGS (3)
  1. BLEOMYCIN [Suspect]
     Indication: TESTIS CANCER
     Dosage: TOTAL DOSE: 390 MG
     Dates: start: 19980220, end: 19980615
  2. ETOPOSIDE [Suspect]
     Indication: TESTIS CANCER
     Dosage: 75 MG/M2 FOR 5 DAYS
     Dates: start: 19980220, end: 19980615
  3. PLATAMINE [Suspect]
     Indication: TESTIS CANCER
     Dosage: 5 COURSES
     Dates: start: 19980220, end: 19980615

REACTIONS (2)
  - COLON CANCER [None]
  - TREATMENT RELATED SECONDARY MALIGNANCY [None]
